FAERS Safety Report 5183928-7 (Version None)
Quarter: 2006Q4

REPORT INFORMATION
  Report Type: 
  Country: None (occurrence: None)
  Receive Date: 20061220
  Receipt Date: 20060228
  Transmission Date: 20070319
  Serious: No
  Sender: FDA-Public Use
  Company Number: US-GLAXOSMITHKLINE-A0595454A

PATIENT
  Age: 22 Year
  Sex: Female

DRUGS (1)
  1. NICODERM CQ [Suspect]
     Dates: start: 20060226, end: 20060227

REACTIONS (5)
  - EUPHORIC MOOD [None]
  - HEART RATE INCREASED [None]
  - INSOMNIA [None]
  - MYALGIA [None]
  - PARAESTHESIA [None]
